FAERS Safety Report 18347969 (Version 1)
Quarter: 2020Q4

REPORT INFORMATION
  Report Type: Spontaneous
  Country: JP (occurrence: JP)
  Receive Date: 20201006
  Receipt Date: 20201006
  Transmission Date: 20210114
  Serious: Yes (Other)
  Sender: FDA-Public Use
  Company Number: JP-ASTRAZENECA-2020SF26217

PATIENT
  Age: 64 Year
  Sex: Male

DRUGS (8)
  1. DOCETAXEL. [Concomitant]
     Active Substance: DOCETAXEL
     Indication: LUNG ADENOCARCINOMA
  2. AFATINIB [Concomitant]
     Active Substance: AFATINIB
     Indication: LUNG ADENOCARCINOMA
     Route: 065
  3. OSIMERTINIB. [Suspect]
     Active Substance: OSIMERTINIB
     Indication: LUNG ADENOCARCINOMA
     Route: 048
  4. AFATINIB [Concomitant]
     Active Substance: AFATINIB
     Indication: LUNG ADENOCARCINOMA
     Dosage: AFATINIB RECHALLENGE
     Route: 065
  5. CARBOPLATIN. [Concomitant]
     Active Substance: CARBOPLATIN
     Indication: LUNG ADENOCARCINOMA
  6. ETOPOSIDE. [Concomitant]
     Active Substance: ETOPOSIDE
     Indication: LUNG ADENOCARCINOMA
  7. AMRUBICIN [Concomitant]
     Active Substance: AMRUBICIN
     Indication: LUNG ADENOCARCINOMA
  8. PEMETREXED. [Concomitant]
     Active Substance: PEMETREXED
     Indication: LUNG ADENOCARCINOMA

REACTIONS (3)
  - Malignant neoplasm progression [Unknown]
  - Drug resistance [Unknown]
  - Malignant transformation [Unknown]
